FAERS Safety Report 13436576 (Version 1)
Quarter: 2017Q2

REPORT INFORMATION
  Report Type: Spontaneous
  Country: US (occurrence: US)
  Receive Date: 20170413
  Receipt Date: 20170413
  Transmission Date: 20170830
  Serious: No
  Sender: FDA-Public Use
  Company Number: US-ASTELLAS-2016US040394

PATIENT
  Age: 43 Year
  Sex: Female

DRUGS (1)
  1. ASTAGRAF XL [Suspect]
     Active Substance: TACROLIMUS
     Indication: RENAL TRANSPLANT
     Dosage: 2 MG ONCE EVERY MORNING AND 1 MG ONCE EVERY EVENING
     Route: 065
     Dates: start: 20150825

REACTIONS (1)
  - Inappropriate schedule of drug administration [Not Recovered/Not Resolved]

NARRATIVE: CASE EVENT DATE: 20150825
